FAERS Safety Report 20132227 (Version 1)
Quarter: 2021Q4

REPORT INFORMATION
  Report Type: Spontaneous
  Country: US (occurrence: US)
  Receive Date: 20211130
  Receipt Date: 20211130
  Transmission Date: 20220304
  Serious: No
  Sender: FDA-Public Use
  Company Number: US-SA-SAC20211126001260

PATIENT
  Age: 83 Year
  Sex: Female

DRUGS (21)
  1. DUPIXENT [Suspect]
     Active Substance: DUPILUMAB
     Indication: Psoriasis
     Dosage: 300 MG, QOW
     Route: 058
     Dates: start: 20180713
  2. ALPRAZOLAM [Concomitant]
     Active Substance: ALPRAZOLAM
  3. AMLODIPINE [Concomitant]
     Active Substance: AMLODIPINE BESYLATE
  4. BENTYL [Concomitant]
     Active Substance: DICYCLOMINE HYDROCHLORIDE
  5. DICYCLOMINE [Concomitant]
     Active Substance: DICYCLOMINE HYDROCHLORIDE
  6. DOXAZOSIN [Concomitant]
     Active Substance: DOXAZOSIN MESYLATE
  7. LIPITOR [Concomitant]
     Active Substance: ATORVASTATIN CALCIUM
  8. LOPRESSOR [Concomitant]
     Active Substance: METOPROLOL TARTRATE
  9. LOSARTAN [Concomitant]
     Active Substance: LOSARTAN
  10. ONDANSETRON [Concomitant]
     Active Substance: ONDANSETRON
  11. PANTOPRAZOLE [Concomitant]
     Active Substance: PANTOPRAZOLE
  12. PREDNISONE [Concomitant]
     Active Substance: PREDNISONE
  13. RANITIDINE [Concomitant]
     Active Substance: RANITIDINE
  14. TACROLIMUS [Concomitant]
     Active Substance: TACROLIMUS
  15. XANAX [Concomitant]
     Active Substance: ALPRAZOLAM
  16. ZOFRAN [Concomitant]
     Active Substance: ONDANSETRON HYDROCHLORIDE
  17. ZOLPIDEM [Concomitant]
     Active Substance: ZOLPIDEM TARTRATE
  18. BETAMETHASONE SODIUM PHOSPHATE [Concomitant]
     Active Substance: BETAMETHASONE SODIUM PHOSPHATE
  19. KLOR-CON [Concomitant]
     Active Substance: POTASSIUM CHLORIDE
  20. POTASSIUM CHLORIDE [Concomitant]
     Active Substance: POTASSIUM CHLORIDE
  21. TRIAMCINOLONE [Concomitant]
     Active Substance: TRIAMCINOLONE

REACTIONS (3)
  - Psoriasis [Unknown]
  - Therapeutic response shortened [Unknown]
  - Product use in unapproved indication [Unknown]

NARRATIVE: CASE EVENT DATE: 20180713
